FAERS Safety Report 11903234 (Version 1)
Quarter: 2016Q1

REPORT INFORMATION
  Report Type: Report from Study
  Country: US (occurrence: US)
  Receive Date: 20160108
  Receipt Date: 20160108
  Transmission Date: 20160526
  Serious: No
  Sender: FDA-Public Use
  Company Number: US-ABBVIE-15P-163-1519664-00

PATIENT
  Sex: Female

DRUGS (2)
  1. MODERIBA [Concomitant]
     Active Substance: RIBAVIRIN
     Indication: HEPATITIS C
     Dosage: 14 TABLETS
     Route: 048
  2. VIEKIRA PAK [Suspect]
     Active Substance: DASABUVIR\OMBITASVIR\PARITAPREVIR\RITONAVIR
     Indication: HEPATITIS C
     Dosage: 2 PINK TABLETS DAILY IN THE AM AND 1 BEIGE TABLET
     Route: 048
     Dates: start: 20151103

REACTIONS (4)
  - Pollakiuria [Unknown]
  - Nightmare [Unknown]
  - Diarrhoea [Unknown]
  - Blister [Unknown]
